FAERS Safety Report 9982343 (Version 1)
Quarter: 2014Q1

REPORT INFORMATION
  Report Type: Report from Study
  Country: US (occurrence: US)
  Receive Date: 20140307
  Receipt Date: 20140307
  Transmission Date: 20141002
  Serious: No
  Sender: FDA-Public Use
  Company Number: US-ABBVIE-13P-163-1179529-00

PATIENT
  Age: 37 Year
  Sex: Female

DRUGS (5)
  1. HUMIRA [Suspect]
     Indication: CROHN^S DISEASE
     Dates: start: 201309
  2. BENTYL [Concomitant]
     Indication: GASTROINTESTINAL PAIN
  3. PHENERGAN [Concomitant]
     Indication: NAUSEA
  4. LEXAPRO [Concomitant]
     Indication: ANXIETY
  5. ATIVAN [Concomitant]
     Indication: ANXIETY

REACTIONS (4)
  - Joint swelling [Not Recovered/Not Resolved]
  - Red blood cell sedimentation rate increased [Unknown]
  - C-reactive protein increased [Unknown]
  - Arthralgia [Not Recovered/Not Resolved]
